FAERS Safety Report 7352606-8 (Version None)
Quarter: 2011Q1

REPORT INFORMATION
  Report Type: 
  Country: None (occurrence: None)
  Receive Date: 20110315
  Receipt Date: 20110304
  Transmission Date: 20110831
  Serious: Yes (Other)
  Sender: FDA-Public Use
  Company Number: AU-EISAI INC-E3810-04384-SPO-AU

PATIENT
  Sex: Female
  Weight: 102 kg

DRUGS (2)
  1. PARIET (RABEPRAZOLE) [Suspect]
     Indication: GASTROOESOPHAGEAL REFLUX DISEASE
     Route: 048
     Dates: start: 20101201, end: 20101214
  2. PARIET (RABEPRAZOLE) [Suspect]
     Route: 048
     Dates: start: 20101125, end: 20101127

REACTIONS (6)
  - TOXICITY TO VARIOUS AGENTS [None]
  - HEADACHE [None]
  - DIZZINESS [None]
  - ILL-DEFINED DISORDER [None]
  - NAUSEA [None]
  - EYE DISORDER [None]
